FAERS Safety Report 9580824 (Version 1)
Quarter: 2013Q4

REPORT INFORMATION
  Report Type: Spontaneous
  Country: US (occurrence: None)
  Receive Date: 20131001
  Receipt Date: 20131001
  Transmission Date: 20140711
  Serious: Yes (Hospitalization)
  Sender: FDA-Public Use
  Company Number: None

PATIENT
  Age: 57 Year
  Sex: Female
  Weight: 89.36 kg

DRUGS (1)
  1. BENICAR [Suspect]
     Indication: HYPERTENSION
     Dosage: 1 TABLET
     Route: 048
     Dates: start: 200601, end: 20130730

REACTIONS (8)
  - Abdominal pain upper [None]
  - Nausea [None]
  - Hypertension [None]
  - Diarrhoea [None]
  - Fatigue [None]
  - Back pain [None]
  - Swelling [None]
  - Gastrointestinal disorder [None]
